FAERS Safety Report 5217210-6 (Version None)
Quarter: 2007Q1

REPORT INFORMATION
  Report Type: 
  Country: None (occurrence: None)
  Receive Date: 20070124
  Receipt Date: 20070117
  Transmission Date: 20070707
  Serious: Yes (Hospitalization)
  Sender: FDA-Public Use
  Company Number: US-BAYER-200710406GDS

PATIENT
  Age: 77 Year
  Sex: Male

DRUGS (15)
  1. ADALAT [Suspect]
     Indication: DRUG USE FOR UNKNOWN INDICATION
     Route: 065
     Dates: start: 20060725, end: 20060912
  2. ADALAT [Suspect]
     Route: 065
  3. DEGARELIX [Suspect]
     Indication: PROSTATE CANCER
     Route: 058
     Dates: start: 20061004, end: 20061004
  4. DEGARELIX [Suspect]
     Route: 058
     Dates: start: 20060711, end: 20060711
  5. DEGARELIX [Suspect]
     Route: 058
     Dates: start: 20060613, end: 20060613
  6. DEGARELIX [Suspect]
     Route: 058
     Dates: start: 20060905, end: 20060905
  7. DEGARELIX [Suspect]
     Route: 058
     Dates: start: 20060516, end: 20060516
  8. DEGARELIX [Suspect]
     Route: 058
     Dates: start: 20060810, end: 20060810
  9. ZOLPIDEM TARTRATE [Concomitant]
     Indication: INSOMNIA
     Route: 048
     Dates: start: 20060806
  10. ALBUTEROL [Concomitant]
     Indication: CHRONIC OBSTRUCTIVE PULMONARY DISEASE
     Route: 055
     Dates: start: 20051103
  11. ASPIRIN [Concomitant]
     Indication: CARDIOVASCULAR EVENT PROPHYLAXIS
     Route: 048
     Dates: start: 20010416
  12. AVALIDE [Concomitant]
     Indication: HYPERTENSION
     Route: 048
     Dates: start: 20060725
  13. TAMSULOSIN HCL [Concomitant]
     Indication: BENIGN PROSTATIC HYPERPLASIA
     Route: 048
     Dates: start: 20050101
  14. GUAIFENESIN [Concomitant]
     Indication: CHRONIC OBSTRUCTIVE PULMONARY DISEASE
     Route: 048
     Dates: start: 20060808
  15. PARACETAMOL [Concomitant]
     Indication: PAIN
     Route: 048
     Dates: start: 20060808

REACTIONS (3)
  - MEDICATION ERROR [None]
  - ORTHOSTATIC HYPOTENSION [None]
  - SYNCOPE [None]
